FAERS Safety Report 6030472-0 (Version None)
Quarter: 2009Q1

REPORT INFORMATION
  Report Type: 
  Country: None (occurrence: None)
  Receive Date: 20090106
  Receipt Date: 20090106
  Transmission Date: 20090719
  Serious: Yes (Other)
  Sender: FDA-Public Use
  Company Number: None

PATIENT
  Sex: Female
  Weight: 82.5547 kg

DRUGS (9)
  1. AVELOX [Suspect]
     Indication: SINUSITIS
     Dosage: 400 MG DAILY
     Dates: start: 20081119, end: 20081202
  2. NASONEX [Concomitant]
  3. SINGULAIR [Concomitant]
  4. ADVAIR DISKUS 250/50 [Concomitant]
  5. XOPENEX [Concomitant]
  6. PREDNISONE TAB [Concomitant]
  7. ALLEGRA D 24 HOUR [Concomitant]
  8. PROVENTIL [Concomitant]
  9. DIAZIDE [Concomitant]

REACTIONS (2)
  - BLOODY DISCHARGE [None]
  - BREAST DISCHARGE [None]
